FAERS Safety Report 13535380 (Version 3)
Quarter: 2017Q4

REPORT INFORMATION
  Report Type: Spontaneous
  Country: IT (occurrence: IT)
  Receive Date: 20170511
  Receipt Date: 20171206
  Transmission Date: 20180320
  Serious: Yes (Death, Hospitalization, Other)
  Sender: FDA-Public Use
  Company Number: IT-PFIZER INC-2017200326

PATIENT
  Age: 68 Year
  Sex: Female

DRUGS (7)
  1. PLASIL [Concomitant]
     Active Substance: METOCLOPRAMIDE HYDROCHLORIDE
     Dosage: UNK
     Dates: start: 20170405
  2. SUTENT [Suspect]
     Active Substance: SUNITINIB MALATE
     Indication: CLEAR CELL RENAL CELL CARCINOMA
     Dosage: 50 MG, CYCLIC (DAILY, 4/2 WEEKS)
     Route: 048
     Dates: start: 20170405, end: 20170420
  3. ZESTORETIC [Concomitant]
     Active Substance: HYDROCHLOROTHIAZIDE\LISINOPRIL
     Indication: HYPERTENSION
     Dosage: 1 DF, DAILY
     Route: 048
     Dates: start: 20170421, end: 20170421
  4. SOLAMIN [Concomitant]
     Dosage: 64 DROPS
  5. ADENURIC [Concomitant]
     Active Substance: FEBUXOSTAT
     Dosage: 80 MG, UNK
     Route: 048
  6. SOLDESAM [Concomitant]
     Active Substance: DEXAMETHASONE
     Indication: ADJUVANT THERAPY
     Dosage: 64 GTT, DAILY
     Route: 048
     Dates: start: 20170405, end: 20170420
  7. LANSOPRAZOLE. [Concomitant]
     Active Substance: LANSOPRAZOLE
     Dosage: 30 MG, DAILY
     Dates: start: 20170405

REACTIONS (6)
  - Periorbital oedema [Unknown]
  - Subarachnoid haemorrhage [Fatal]
  - Thrombocytopenia [Unknown]
  - Malaise [Unknown]
  - Seizure [Fatal]
  - Asthenia [Unknown]

NARRATIVE: CASE EVENT DATE: 20170421
